FAERS Safety Report 7647166-8 (Version None)
Quarter: 2011Q3

REPORT INFORMATION
  Report Type: 
  Country: None (occurrence: None)
  Receive Date: 20110729
  Receipt Date: 20110729
  Transmission Date: 20111222
  Serious: No
  Sender: FDA-Public Use
  Company Number: None

PATIENT
  Sex: Male
  Weight: 149 kg

DRUGS (2)
  1. VANCOMYCIN [Suspect]
     Dosage: 1500 MG Q12H IV
     Route: 042
     Dates: start: 20110712, end: 20110716
  2. ZOSYN [Suspect]
     Indication: CELLULITIS
     Dosage: 3.375 GM Q6H IV
     Route: 042
     Dates: start: 20110712, end: 20110716

REACTIONS (3)
  - PSYCHOTIC BEHAVIOUR [None]
  - JAUNDICE [None]
  - HALLUCINATION, VISUAL [None]
